FAERS Safety Report 5402715-5 (Version None)
Quarter: 2007Q3

REPORT INFORMATION
  Report Type: 
  Country: None (occurrence: None)
  Receive Date: 20070801
  Receipt Date: 20070724
  Transmission Date: 20080115
  Serious: Yes (Hospitalization)
  Sender: FDA-Public Use
  Company Number: B0481569A

PATIENT
  Age: 20 Year
  Sex: Male

DRUGS (1)
  1. AUGMENTIN '125' [Suspect]
     Indication: WOUND
     Dosage: 1G UNKNOWN
     Route: 048
     Dates: start: 20070628, end: 20070705

REACTIONS (10)
  - AURICULAR SWELLING [None]
  - DRUG ERUPTION [None]
  - DYSPHAGIA [None]
  - ERYTHEMA [None]
  - LIP SWELLING [None]
  - OEDEMA PERIPHERAL [None]
  - PRURITUS [None]
  - RASH ERYTHEMATOUS [None]
  - RASH MACULAR [None]
  - SKIN BURNING SENSATION [None]
